FAERS Safety Report 10628946 (Version 1)
Quarter: 2014Q4

REPORT INFORMATION
  Report Type: Spontaneous
  Country: US (occurrence: US)
  Receive Date: 20141205
  Receipt Date: 20141205
  Transmission Date: 20150529
  Serious: No
  Sender: FDA-Public Use
  Company Number: US-BRISTOL-MYERS SQUIBB COMPANY-21464227

PATIENT
  Age: 52 Year
  Sex: Female

DRUGS (5)
  1. JAKAFI [Suspect]
     Active Substance: RUXOLITINIB
     Indication: MYELOPROLIFERATIVE DISORDER
     Dosage: THERAPY START DATE 3O-JUL-2014
     Route: 048
     Dates: start: 20140102
  2. JAKAFI [Suspect]
     Active Substance: RUXOLITINIB
     Indication: MYELOPROLIFERATIVE DISORDER
     Route: 048
     Dates: start: 20140730
  3. COUMADIN [Concomitant]
     Active Substance: WARFARIN SODIUM
  4. HYDROXYUREA. [Suspect]
     Active Substance: HYDROXYUREA
     Indication: SPLENOMEGALY
     Route: 048
     Dates: start: 201407, end: 20140730
  5. ADVIL [Concomitant]
     Active Substance: IBUPROFEN

REACTIONS (3)
  - Myalgia [Unknown]
  - Vision blurred [Unknown]
  - Full blood count decreased [Unknown]
